FAERS Safety Report 13386885 (Version 4)
Quarter: 2017Q3

REPORT INFORMATION
  Report Type: Report from Study
  Country: GB (occurrence: GB)
  Receive Date: 20170330
  Receipt Date: 20170717
  Transmission Date: 20171127
  Serious: Yes (Other)
  Sender: FDA-Public Use
  Company Number: GB-JNJFOC-20170331643

PATIENT
  Sex: Female

DRUGS (1)
  1. SIMPONI [Suspect]
     Active Substance: GOLIMUMAB
     Indication: ARTHRITIS
     Route: 058

REACTIONS (5)
  - Arthritis [Unknown]
  - Joint prosthesis user [Unknown]
  - Haemoptysis [Unknown]
  - Adverse drug reaction [Unknown]
  - Lower respiratory tract infection [Not Recovered/Not Resolved]
